FAERS Safety Report 10196232 (Version 1)
Quarter: 2014Q2

REPORT INFORMATION
  Report Type: Spontaneous
  Country: CH (occurrence: CH)
  Receive Date: 20140527
  Receipt Date: 20140527
  Transmission Date: 20141212
  Serious: Yes (Hospitalization)
  Sender: FDA-Public Use
  Company Number: CH-NOVOPROD-410243

PATIENT
  Age: 71 Year
  Sex: Female
  Weight: 79 kg

DRUGS (15)
  1. NOVOMIX 30 FLEXPEN [Suspect]
     Indication: TYPE 2 DIABETES MELLITUS
     Dosage: 40 IU, BID
     Route: 058
  2. NOVOMIX 30 FLEXPEN [Suspect]
     Dosage: 36 IU POST PRANDIAL
     Route: 058
  3. METFIN [Suspect]
     Indication: PRODUCT USED FOR UNKNOWN INDICATION
     Dosage: 1000 MG, TID
     Route: 048
     Dates: end: 20140403
  4. ONGLYZA [Suspect]
     Indication: PRODUCT USED FOR UNKNOWN INDICATION
     Dosage: 5 MG, QD
     Route: 048
  5. ATENOLOL [Concomitant]
     Dosage: 100 MG, QD
     Route: 048
  6. CADUET [Concomitant]
     Dosage: 1 TAB, QD
     Route: 048
     Dates: end: 20140403
  7. DANCOR [Concomitant]
     Dosage: 10 MG, BID
     Route: 048
  8. MODURETIC [Concomitant]
     Dosage: 1 DF, QD
     Route: 048
     Dates: end: 20140403
  9. QUETIAPINE [Concomitant]
     Dosage: 12.5 MG, QD
     Route: 048
  10. DETRUSITOL [Concomitant]
     Dosage: 4 MG, QD
     Route: 048
  11. ASPIRIN CARDIO [Concomitant]
     Dosage: 100 MG, QD
     Route: 048
  12. PANTOPRAZOL [Concomitant]
     Dosage: 20 MG, QD
     Route: 048
  13. PAROXETIN                          /00830801/ [Concomitant]
     Dosage: 20 MG, QD
     Route: 048
  14. ATARAX                             /00058401/ [Concomitant]
     Dosage: 12.5 MG, TID
     Route: 048
  15. LYRICA [Concomitant]
     Dosage: 75 MG, BID
     Route: 048

REACTIONS (3)
  - Malaise [Recovered/Resolved]
  - Fall [Recovered/Resolved]
  - Hypoglycaemia [Recovered/Resolved]
